FAERS Safety Report 8191250 (Version 8)
Quarter: 2013Q4

REPORT INFORMATION
  Report Type: Spontaneous
  Country: JP (occurrence: JP)
  Receive Date: 20111020
  Receipt Date: 20131231
  Transmission Date: 20140711
  Serious: Yes (Life-Threatening, Other)
  Sender: FDA-Public Use
  Company Number: JP-ROCHE-1003527

PATIENT
  Age: 65 Year
  Sex: Male
  Weight: 66 kg

DRUGS (3)
  1. XELODA [Suspect]
     Indication: RECTAL CANCER METASTATIC
     Route: 048
     Dates: start: 20110823, end: 20110905
  2. AVASTIN [Suspect]
     Indication: RECTAL CANCER METASTATIC
     Route: 041
     Dates: start: 20110823, end: 20110823
  3. ELPLAT [Concomitant]
     Indication: RECTAL CANCER METASTATIC
     Route: 041
     Dates: start: 20110823, end: 20110823

REACTIONS (8)
  - Stomatitis [Recovering/Resolving]
  - Bone marrow failure [Recovered/Resolved]
  - Diarrhoea [Recovering/Resolving]
  - Jaundice [Recovering/Resolving]
  - Infection [Unknown]
  - Palmar-plantar erythrodysaesthesia syndrome [Recovered/Resolved]
  - Pseudomembranous colitis [Recovering/Resolving]
  - Pyrexia [Unknown]
